FAERS Safety Report 6406432-4 (Version None)
Quarter: 2009Q4

REPORT INFORMATION
  Report Type: 
  Country: None (occurrence: None)
  Receive Date: 20091014
  Receipt Date: 20091008
  Transmission Date: 20100525
  Serious: No
  Sender: FDA-Public Use
  Company Number: 2009SP026613

PATIENT
  Age: 68 Year
  Sex: Female
  Weight: 68.0396 kg

DRUGS (7)
  1. MIRALAX [Suspect]
     Indication: CONSTIPATION
     Dosage: 8.5 GM; PO;
     Route: 048
     Dates: start: 20090101, end: 20090917
  2. VITAMINS [Concomitant]
  3. FISH OIL   VITAMINS  FISH OIL [Concomitant]
  4. HIGH BLOOD PRESSURE MEDICATION [Concomitant]
  5. CALCIUM [Concomitant]
  6. VERAPAMIL [Concomitant]
  7. AMLODIPINE [Concomitant]

REACTIONS (3)
  - ABDOMINAL DISTENSION [None]
  - FAECES DISCOLOURED [None]
  - FLATULENCE [None]
